FAERS Safety Report 8445996-6 (Version None)
Quarter: 2012Q2

REPORT INFORMATION
  Report Type: 
  Country: None (occurrence: None)
  Receive Date: 20120618
  Receipt Date: 20120614
  Transmission Date: 20120825
  Serious: Yes (Other)
  Sender: FDA-Public Use
  Company Number: GB-ROCHE-1078375

PATIENT
  Age: 63 Year
  Sex: Female

DRUGS (7)
  1. PREDNISOLONE [Concomitant]
  2. DICLOFENAC SODIUM [Concomitant]
  3. FOLIC ACID [Concomitant]
  4. METHOTREXATE [Concomitant]
  5. RITUXIMAB [Suspect]
     Indication: RHEUMATOID ARTHRITIS
     Route: 042
     Dates: start: 20120330, end: 20120413
  6. AMLODIPINE [Concomitant]
  7. OMEPRAZOLE [Concomitant]

REACTIONS (4)
  - THROMBOSIS [None]
  - HYPOAESTHESIA [None]
  - TRANSIENT ISCHAEMIC ATTACK [None]
  - PARAESTHESIA [None]
